FAERS Safety Report 18800252 (Version 1)
Quarter: 2021Q1

REPORT INFORMATION
  Report Type: Spontaneous
  Country: US (occurrence: US)
  Receive Date: 20210128
  Receipt Date: 20210128
  Transmission Date: 20210419
  Serious: Yes (Hospitalization)
  Sender: FDA-Public Use
  Company Number: None

PATIENT
  Age: 13 Year
  Sex: Male

DRUGS (5)
  1. ALVESCO [Concomitant]
     Active Substance: CICLESONIDE
  2. AZITHROMYCIN 250MG DOSE PACK [Suspect]
     Active Substance: AZITHROMYCIN
     Indication: PNEUMONIA
     Route: 048
     Dates: start: 20201123, end: 20201124
  3. ALBUTEROL INHALERS [Concomitant]
  4. AZITHROMYCIN 250MG DOSE PACK [Suspect]
     Active Substance: AZITHROMYCIN
     Indication: COUGH
     Route: 048
     Dates: start: 20201123, end: 20201124
  5. AZITHROMYCIN 250MG DOSE PACK [Suspect]
     Active Substance: AZITHROMYCIN
     Indication: ASTHMA
     Route: 048
     Dates: start: 20201123, end: 20201124

REACTIONS (6)
  - Gait disturbance [None]
  - Mobility decreased [None]
  - Ligamentitis [None]
  - Asthenia [None]
  - Arthralgia [None]
  - Pain in extremity [None]

NARRATIVE: CASE EVENT DATE: 20201123
